FAERS Safety Report 13064188 (Version 2)
Quarter: 2017Q1

REPORT INFORMATION
  Report Type: Spontaneous
  Country: ES (occurrence: ES)
  Receive Date: 20161227
  Receipt Date: 20170109
  Transmission Date: 20170428
  Serious: Yes (Death, Life-Threatening, Hospitalization)
  Sender: FDA-Public Use
  Company Number: PHHO2016ES018526

PATIENT
  Age: 58 Year
  Sex: Male
  Weight: 70 kg

DRUGS (2)
  1. DEFERASIROX [Suspect]
     Active Substance: DEFERASIROX
     Indication: PRODUCT USED FOR UNKNOWN INDICATION
     Dosage: 500 MG, QOD
     Route: 048
     Dates: start: 20160420
  2. RUXOLITINIB [Suspect]
     Active Substance: RUXOLITINIB
     Indication: MYELOFIBROSIS
     Dosage: 20 MG, Q12H
     Route: 048
     Dates: start: 20160127

REACTIONS (9)
  - Haemoglobin decreased [Unknown]
  - Abdominal pain upper [Fatal]
  - Acute myeloid leukaemia [Unknown]
  - Septic shock [Fatal]
  - Aplasia [Fatal]
  - Intestinal perforation [Fatal]
  - Pyrexia [Fatal]
  - Pancytopenia [Unknown]
  - Vomiting [Fatal]

NARRATIVE: CASE EVENT DATE: 20160420
